FAERS Safety Report 4378726-8 (Version None)
Quarter: 2004Q2

REPORT INFORMATION
  Report Type: 
  Country: None (occurrence: None)
  Receive Date: 20040616
  Receipt Date: 20040510
  Transmission Date: 20050107
  Serious: Yes (Other)
  Sender: FDA-Public Use
  Company Number: PHBS2004JP06339

PATIENT
  Age: 68 Year
  Sex: Male
  Weight: 67 kg

DRUGS (5)
  1. DIOVAN [Suspect]
     Dosage: 40 MG, QD
     Route: 048
     Dates: start: 20040322, end: 20040329
  2. LONGES [Concomitant]
     Dosage: 10 MG, UNK
     Route: 048
     Dates: start: 19920825
  3. LIPITOR [Concomitant]
     Dosage: 10 MG, UNK
     Route: 048
     Dates: start: 20000731
  4. GLIMICRON [Concomitant]
     Dosage: 20 MG, UNK
     Route: 048
     Dates: start: 19980525
  5. PERDIPINE-LA [Concomitant]
     Dosage: 80 MG, UNK
     Route: 048
     Dates: start: 19980525, end: 20040526

REACTIONS (3)
  - CATARACT [None]
  - PHOTOPHOBIA [None]
  - VISUAL DISTURBANCE [None]
